FAERS Safety Report 16297131 (Version 4)
Quarter: 2020Q4

REPORT INFORMATION
  Report Type: Report from Study
  Country: US (occurrence: US)
  Receive Date: 20190510
  Receipt Date: 20201016
  Transmission Date: 20210113
  Serious: No
  Sender: FDA-Public Use
  Company Number: PHEH2019US019763

PATIENT
  Sex: Female

DRUGS (3)
  1. EPOPROSTENOL TEVA [Concomitant]
     Active Substance: EPOPROSTENOL SODIUM
     Indication: PRODUCT USED FOR UNKNOWN INDICATION
     Dosage: UNK
     Route: 065
  2. TREPROSTINIL. [Suspect]
     Active Substance: TREPROSTINIL
     Indication: PULMONARY ARTERIAL HYPERTENSION
     Dosage: 64 UG/KG/MIN, CONTINUOUS
     Route: 042
     Dates: start: 20190418
  3. REVATIO [Concomitant]
     Active Substance: SILDENAFIL CITRATE
     Indication: PRODUCT USED FOR UNKNOWN INDICATION
     Dosage: UNK
     Route: 065

REACTIONS (17)
  - Diarrhoea [Unknown]
  - Flatulence [Unknown]
  - Dizziness [Unknown]
  - Asthenia [Unknown]
  - Oxygen saturation abnormal [Unknown]
  - Vomiting [Unknown]
  - Abdominal distension [Unknown]
  - Nausea [Unknown]
  - Musculoskeletal chest pain [Unknown]
  - Presyncope [Unknown]
  - Drug ineffective [Unknown]
  - Vision blurred [Unknown]
  - Gait disturbance [Unknown]
  - Headache [Unknown]
  - Feeling abnormal [Unknown]
  - Eructation [Unknown]
  - Increased appetite [Unknown]
